FAERS Safety Report 7875860-2 (Version None)
Quarter: 2011Q4

REPORT INFORMATION
  Report Type: 
  Country: None (occurrence: None)
  Receive Date: 20111031
  Receipt Date: 20111019
  Transmission Date: 20120403
  Serious: Yes (Other)
  Sender: FDA-Public Use
  Company Number: JP-ROCHE-746917

PATIENT
  Age: 54 Year
  Sex: Female
  Weight: 48 kg

DRUGS (10)
  1. PHENYTOIN [Interacting]
     Route: 065
     Dates: start: 20100223, end: 20100101
  2. ARIMIDEX [Concomitant]
     Route: 048
  3. MESTINON [Concomitant]
     Route: 048
  4. XELODA [Interacting]
     Route: 048
     Dates: start: 20100125, end: 20100201
  5. PHENYTOIN [Interacting]
     Route: 065
  6. FARESTON [Concomitant]
     Route: 048
     Dates: start: 20100104, end: 20100224
  7. PHENYTOIN [Interacting]
     Route: 065
     Dates: start: 20100204, end: 20100101
  8. PHENYTOIN [Interacting]
     Indication: EPILEPSY
     Route: 065
  9. SELBEX [Concomitant]
     Route: 048
  10. XELODA [Suspect]
     Indication: BREAST CANCER
     Dosage: DOSAGE IS UNCERTAIN.
     Route: 048
     Dates: start: 20100104, end: 20100117

REACTIONS (3)
  - NAUSEA [None]
  - DRUG INTERACTION [None]
  - TOXICITY TO VARIOUS AGENTS [None]
